FAERS Safety Report 11628640 (Version 3)
Quarter: 2015Q4

REPORT INFORMATION
  Report Type: Report from Study
  Country: US (occurrence: US)
  Receive Date: 20151014
  Receipt Date: 20151203
  Transmission Date: 20160304
  Serious: Yes (Hospitalization)
  Sender: FDA-Public Use
  Company Number: US-BIOGENIDEC-2014BI109946

PATIENT
  Age: 56 Year
  Sex: Male
  Weight: 82 kg

DRUGS (11)
  1. TRAZODONE [Concomitant]
     Active Substance: TRAZODONE HYDROCHLORIDE
     Indication: SLEEP DISORDER
     Route: 048
  2. AMPYRA [Concomitant]
     Active Substance: DALFAMPRIDINE
     Indication: GAIT DISTURBANCE
     Route: 048
     Dates: start: 201410, end: 2015
  3. TECFIDERA [Suspect]
     Active Substance: DIMETHYL FUMARATE
     Indication: MULTIPLE SCLEROSIS
     Route: 048
     Dates: start: 201409
  4. TECFIDERA [Suspect]
     Active Substance: DIMETHYL FUMARATE
     Indication: MULTIPLE SCLEROSIS
     Route: 048
     Dates: start: 20141024
  5. PRAVASTATIN SODIUM. [Concomitant]
     Active Substance: PRAVASTATIN SODIUM
  6. HYDROCHLOROTHIAZIDE. [Concomitant]
     Active Substance: HYDROCHLOROTHIAZIDE
  7. TECFIDERA [Suspect]
     Active Substance: DIMETHYL FUMARATE
     Indication: MULTIPLE SCLEROSIS
     Route: 048
     Dates: start: 20141016, end: 20141023
  8. TRAZODONE [Concomitant]
     Active Substance: TRAZODONE HYDROCHLORIDE
     Indication: SLEEP DISORDER
     Route: 048
  9. HYDRALAZINE [Concomitant]
     Active Substance: HYDRALAZINE HYDROCHLORIDE
  10. LITHIUM CARBONATE. [Concomitant]
     Active Substance: LITHIUM CARBONATE
  11. DILTIAZEM [Concomitant]
     Active Substance: DILTIAZEM

REACTIONS (20)
  - Hyperhidrosis [Recovered/Resolved]
  - Somnolence [Unknown]
  - Head injury [Unknown]
  - Nausea [Recovered/Resolved]
  - Depression [Not Recovered/Not Resolved]
  - Fall [Recovered/Resolved]
  - Dizziness [Unknown]
  - Flushing [Recovered/Resolved]
  - Visual acuity reduced [Unknown]
  - Asthenia [Unknown]
  - Skin tightness [Recovered/Resolved]
  - Gait disturbance [Not Recovered/Not Resolved]
  - Pruritus [Recovered/Resolved]
  - Feeling hot [Recovered/Resolved]
  - Balance disorder [Unknown]
  - Bipolar disorder [Unknown]
  - Hot flush [Recovered/Resolved]
  - Muscular weakness [Unknown]
  - Dysstasia [Not Recovered/Not Resolved]
  - Insomnia [Unknown]

NARRATIVE: CASE EVENT DATE: 2014
